FAERS Safety Report 6433108-X (Version None)
Quarter: 2009Q4

REPORT INFORMATION
  Report Type: 
  Country: None (occurrence: None)
  Receive Date: 20091105
  Receipt Date: 20091023
  Transmission Date: 20100525
  Serious: Yes (Hospitalization)
  Sender: FDA-Public Use
  Company Number: DSJ-2009-12106

PATIENT
  Age: 74 Year
  Sex: Female
  Weight: 55 kg

DRUGS (14)
  1. OLMESARTAN MEDOXOMIL [Suspect]
     Indication: HYPERTENSION
     Dosage: 20 MG, PER ORAL
     Route: 048
     Dates: start: 20050101, end: 20090610
  2. OLMESARTAN MEDOXOMIL [Suspect]
     Indication: HYPERTENSION
     Dosage: 20 MG, PER ORAL
     Route: 048
     Dates: start: 20090615, end: 20090703
  3. TEGRETOL [Suspect]
     Indication: HYPOAESTHESIA
     Dates: start: 20090605, end: 20090610
  4. BEZATATE SR (BEZAFIBRATE) (BEZAFIBRATE) [Concomitant]
  5. ACETYLSALICYLIC ACID SRT [Concomitant]
  6. OMEPRAZOLE (OMEPRAZOLE) (TABLET) (OMEPRAZOLE) [Concomitant]
  7. GASSAAL (SIMETICONE) (SIMETICONE) [Concomitant]
  8. TEPRENONE (TEPRENONE) (CAPSULE) (TEPRENONE) [Concomitant]
  9. NILDILART (NILVADIPINE) (TABLET) (NILVADIPINE) [Concomitant]
  10. NE-SOFT (TOCOPHERYL NICOTINATE) (TOCOPHERYL NICOTINATE) [Concomitant]
  11. BIOFERMIN SR (LACTOBACILLUS ACIDOPHILUS, BACILLUS SUBTILIS, STREPTOCOC [Concomitant]
  12. PICOSULFAT (SODIUM PICOSULFATE) (SODIUM PICOSULFATE) [Concomitant]
  13. PREDONINE (PREDNISOLONE) (PREDNISOLONE) [Concomitant]
  14. MUCOSTA (REBAMIPIDE) (REBAMIPIDE) [Concomitant]

REACTIONS (6)
  - CEREBRAL INFARCTION [None]
  - DRUG INTERACTION [None]
  - GASTRITIS [None]
  - HYPOAESTHESIA [None]
  - MYALGIA [None]
  - TOXIC SKIN ERUPTION [None]
